FAERS Safety Report 4312016-4 (Version None)
Quarter: 2004Q1

REPORT INFORMATION
  Report Type: 
  Country: None (occurrence: None)
  Receive Date: 20040305
  Receipt Date: 20040224
  Transmission Date: 20041129
  Serious: Yes (Hospitalization, Congenital Anomaly)
  Sender: FDA-Public Use
  Company Number: 200410764FR

PATIENT
  Age: 31 Year
  Sex: Female
  Weight: 65 kg

DRUGS (3)
  1. LOVENOX [Suspect]
     Route: 058
     Dates: start: 20021031, end: 20030329
  2. ASPIRIN [Suspect]
     Route: 048
     Dates: start: 20021031, end: 20030329
  3. SPECIAFOLDINE [Suspect]
     Dosage: DOSE UNIT: UNITS
     Route: 048
     Dates: start: 20021031, end: 20030329

REACTIONS (17)
  - ABORTION [None]
  - ABORTION INDUCED [None]
  - ANTIBODY TEST POSITIVE [None]
  - CHONDRODYSTROPHY [None]
  - COAGULATION FACTOR IX LEVEL INCREASED [None]
  - COAGULATION FACTOR VII LEVEL INCREASED [None]
  - COAGULATION FACTOR VIII LEVEL INCREASED [None]
  - COMPLICATIONS OF MATERNAL EXPOSURE TO THERAPEUTIC DRUGS [None]
  - CONGENITAL CYSTIC KIDNEY DISEASE [None]
  - CONGENITAL GENITOURINARY ABNORMALITY [None]
  - FOETAL GROWTH RETARDATION [None]
  - HAEMORRHAGE [None]
  - MATERNAL DRUGS AFFECTING FOETUS [None]
  - PLACENTAL DISORDER [None]
  - PLACENTAL INSUFFICIENCY [None]
  - RETROPLACENTAL HAEMATOMA [None]
  - STILLBIRTH [None]
